FAERS Safety Report 11867810 (Version 2)
Quarter: 2015Q4

REPORT INFORMATION
  Report Type: Spontaneous
  Country: ES (occurrence: ES)
  Receive Date: 20151224
  Receipt Date: 20151229
  Transmission Date: 20160305
  Serious: Yes (Other)
  Sender: FDA-Public Use
  Company Number: ES-JNJFOC-20151018719

PATIENT
  Age: 53 Year
  Sex: Female

DRUGS (4)
  1. YONDELIS [Suspect]
     Active Substance: TRABECTEDIN
     Indication: OVARIAN CANCER
     Dosage: CYCLE 4 WAS ADMINISTERED AT A REDUCED DOSE OF 20%
     Route: 042
     Dates: start: 20151026
  2. CAELYX [Suspect]
     Active Substance: DOXORUBICIN HYDROCHLORIDE
     Indication: OVARIAN CANCER
     Dosage: CYCLE 1
     Route: 065
     Dates: start: 20150807, end: 20150918
  3. CAELYX [Suspect]
     Active Substance: DOXORUBICIN HYDROCHLORIDE
     Indication: OVARIAN CANCER
     Dosage: CYCLE 4 WAS ADMINISTERED AT A REDUCED DOSE
     Route: 065
     Dates: start: 20151026
  4. YONDELIS [Suspect]
     Active Substance: TRABECTEDIN
     Indication: OVARIAN CANCER
     Dosage: CYCLE 1
     Route: 042
     Dates: start: 20150807, end: 20150918

REACTIONS (19)
  - Bacteraemia [Unknown]
  - Asthenia [Unknown]
  - Haematotoxicity [Recovered/Resolved]
  - Febrile neutropenia [Unknown]
  - Oral candidiasis [Unknown]
  - Hypertension [Unknown]
  - Transaminases increased [Recovered/Resolved]
  - Sepsis [Unknown]
  - Dermatitis [Unknown]
  - Blood alkaline phosphatase increased [Not Recovered/Not Resolved]
  - Cholestasis [Unknown]
  - Device related infection [Unknown]
  - Mucosal inflammation [Unknown]
  - Enteritis [Unknown]
  - Pancytopenia [Unknown]
  - Thrombocytopenia [Unknown]
  - Anaemia [Unknown]
  - Epistaxis [Unknown]
  - Upper respiratory tract infection [Unknown]
